FAERS Safety Report 5856195-6 (Version None)
Quarter: 2008Q3

REPORT INFORMATION
  Report Type: 
  Country: None (occurrence: None)
  Receive Date: 20080825
  Receipt Date: 20080820
  Transmission Date: 20090109
  Serious: Yes (Other)
  Sender: FDA-Public Use
  Company Number: A0743520A

PATIENT
  Age: 58 Year
  Sex: Female

DRUGS (3)
  1. LOVAZA [Suspect]
     Dosage: 2G TWICE PER DAY
     Route: 048
     Dates: start: 20080601
  2. NORVASC [Concomitant]
  3. FEMHRT [Concomitant]

REACTIONS (2)
  - CHOKING [None]
  - DYSPHAGIA [None]
